FAERS Safety Report 20584660 (Version 1)
Quarter: 2022Q1

REPORT INFORMATION
  Report Type: Spontaneous
  Country: ES (occurrence: ES)
  Receive Date: 20220311
  Receipt Date: 20220311
  Transmission Date: 20220423
  Serious: Yes (Hospitalization, Other)
  Sender: FDA-Public Use
  Company Number: ES-Accord-239066

PATIENT
  Age: 65 Year
  Sex: Male
  Weight: 80 kg

DRUGS (11)
  1. OXALIPLATIN [Suspect]
     Active Substance: OXALIPLATIN
     Dosage: SINGLE; ROUTE OF ADMINISTRATION : INTRAVENOUS; 100 MG/M2
     Route: 042
     Dates: start: 20210809, end: 20210809
  2. GEMCITABINE [Suspect]
     Active Substance: GEMCITABINE
     Dosage: 1Q2W; ROUTE OF ADMINISTRATION : INTRAVENOUS . 100 MG/M2
     Route: 042
     Dates: start: 20210809
  3. EPCORITAMAB [Suspect]
     Active Substance: EPCORITAMAB
     Dosage: PRIMING DOSE: 0.16 MILLIGRAM, SINGLE;
     Route: 058
     Dates: start: 20210809, end: 20210809
  4. EPCORITAMAB [Suspect]
     Active Substance: EPCORITAMAB
     Dosage: FULL DOSE: 48 MILLIGRAM, SINGLE; WEEKLY
     Route: 058
     Dates: start: 20210823
  5. EPCORITAMAB [Suspect]
     Active Substance: EPCORITAMAB
     Dosage: INTERMEDIATE DOSE: 0.8 MILLIGRAM, SINGLE;
     Route: 058
     Dates: start: 20210816, end: 20210816
  6. ACETAMINOPHEN [Concomitant]
     Active Substance: ACETAMINOPHEN
     Dates: start: 20210809, end: 20210831
  7. SULFAMETHOXAZOLE\TRIMETHOPRIM [Concomitant]
     Active Substance: SULFAMETHOXAZOLE\TRIMETHOPRIM
     Dates: start: 20210728
  8. PANTOPRAZOLE SODIUM [Concomitant]
     Active Substance: PANTOPRAZOLE SODIUM
     Dates: start: 20210729
  9. POLARAMINE [Concomitant]
     Active Substance: DEXCHLORPHENIRAMINE MALEATE
     Dates: start: 20210809, end: 20210831
  10. FUROSEMIDE [Concomitant]
     Active Substance: FUROSEMIDE
  11. FOLIC ACID [Concomitant]
     Active Substance: FOLIC ACID
     Dates: start: 20210809

REACTIONS (2)
  - Pneumothorax [Recovered/Resolved]
  - Off label use [Unknown]

NARRATIVE: CASE EVENT DATE: 20210810
